FAERS Safety Report 16138148 (Version 1)
Quarter: 2019Q1

REPORT INFORMATION
  Report Type: Spontaneous
  Country: FR (occurrence: FR)
  Receive Date: 20190330
  Receipt Date: 20190330
  Transmission Date: 20190418
  Serious: Yes (Hospitalization)
  Sender: FDA-Public Use
  Company Number: FR-ACCORD-116253

PATIENT
  Age: 80 Year
  Sex: Male

DRUGS (8)
  1. ALPRAZOLAM. [Concomitant]
     Active Substance: ALPRAZOLAM
  2. MACROGOL/MACROGOL STEARATE [Concomitant]
  3. EZETIMIBE. [Suspect]
     Active Substance: EZETIMIBE
     Indication: PRODUCT USED FOR UNKNOWN INDICATION
     Route: 048
  4. PRAVASTATIN. [Interacting]
     Active Substance: PRAVASTATIN
     Indication: PRODUCT USED FOR UNKNOWN INDICATION
     Route: 048
  5. PREVISCAN (FLUINDIONE) [Interacting]
     Active Substance: FLUINDIONE
     Indication: CEREBROVASCULAR ACCIDENT
     Dosage: 0.75 1JOUR ET 0.5 LE LENDEMAIN
     Route: 048
     Dates: end: 20181206
  6. RISPERDAL [Concomitant]
     Active Substance: RISPERIDONE
  7. AMLODIPINE [Concomitant]
     Active Substance: AMLODIPINE BESYLATE
  8. NORMACOL [Concomitant]
     Active Substance: HERBALS\KARAYA GUM

REACTIONS (3)
  - Haematuria [Unknown]
  - Drug interaction [Unknown]
  - International normalised ratio increased [Not Recovered/Not Resolved]

NARRATIVE: CASE EVENT DATE: 20181206
